FAERS Safety Report 19887288 (Version 2)
Quarter: 2021Q4

REPORT INFORMATION
  Report Type: Spontaneous
  Country: US (occurrence: US)
  Receive Date: 20210927
  Receipt Date: 20211105
  Transmission Date: 20220303
  Serious: No
  Sender: FDA-Public Use
  Company Number: US-GLAXOSMITHKLINE-US2021200589

PATIENT
  Age: 73 Year
  Sex: Female

DRUGS (1)
  1. FLONASE SENSIMIST ALLERGY RELIEF [Suspect]
     Active Substance: FLUTICASONE FUROATE
     Indication: Sinusitis
     Dosage: 2 DF, U

REACTIONS (3)
  - Wrong technique in device usage process [Unknown]
  - Product use in unapproved indication [Unknown]
  - Product complaint [Unknown]
